FAERS Safety Report 18028970 (Version 1)
Quarter: 2020Q3

REPORT INFORMATION
  Report Type: Spontaneous
  Country: US (occurrence: US)
  Receive Date: 20200716
  Receipt Date: 20200716
  Transmission Date: 20201103
  Serious: Yes (Hospitalization, Other)
  Sender: FDA-Public Use
  Company Number: US-HIKMA PHARMACEUTICALS USA INC.-US-H14001-20-03283

PATIENT
  Age: 55 Year
  Sex: Male

DRUGS (1)
  1. SODIUM POLYSTYRENE SULPHONATE [Suspect]
     Active Substance: SODIUM POLYSTYRENE SULFONATE
     Indication: PRODUCT USED FOR UNKNOWN INDICATION
     Route: 065

REACTIONS (2)
  - Pelvic mass [Unknown]
  - Intestinal perforation [Unknown]
